FAERS Safety Report 4845106-8 (Version None)
Quarter: 2005Q4

REPORT INFORMATION
  Report Type: 
  Country: None (occurrence: None)
  Receive Date: 20051205
  Receipt Date: 20041001
  Transmission Date: 20060501
  Serious: Yes (Hospitalization, Other)
  Sender: FDA-Public Use
  Company Number: ES-MERCK-0410ESP00015

PATIENT
  Age: 59 Year
  Sex: Female

DRUGS (4)
  1. VIOXX [Suspect]
     Indication: OSTEOARTHRITIS
     Route: 048
     Dates: start: 20020701, end: 20040930
  2. RIFAMPIN [Concomitant]
     Route: 065
     Dates: start: 20030702, end: 20030803
  3. TETRACYCLINE [Concomitant]
     Route: 065
     Dates: start: 20030702, end: 20030803
  4. OMEPRAZOLE [Concomitant]
     Route: 065
     Dates: start: 20020701

REACTIONS (14)
  - ANOREXIA [None]
  - ARTHRALGIA [None]
  - ASTHENIA [None]
  - CEREBRAL INFARCTION [None]
  - CEREBROVASCULAR ACCIDENT [None]
  - CHEST PAIN [None]
  - COMPLEX PARTIAL SEIZURES [None]
  - FEELING ABNORMAL [None]
  - HEADACHE [None]
  - HYPOACUSIS [None]
  - LOSS OF CONSCIOUSNESS [None]
  - MYALGIA [None]
  - TACHYCARDIA [None]
  - TINNITUS [None]
